FAERS Safety Report 18301895 (Version 2)
Quarter: 2020Q4

REPORT INFORMATION
  Report Type: Spontaneous
  Country: JP (occurrence: JP)
  Receive Date: 20200923
  Receipt Date: 20201001
  Transmission Date: 20210113
  Serious: Yes (Other)
  Sender: FDA-Public Use
  Company Number: JP-PFIZER INC-2020367286

PATIENT
  Age: 5 Decade
  Sex: Male

DRUGS (10)
  1. LOTRIGA [Concomitant]
     Active Substance: OMEGA-3-ACID ETHYL ESTERS
     Dosage: UNK UNK, UNKNOWN FREQ.
     Route: 065
     Dates: start: 20180518
  2. FEBURIC [Concomitant]
     Active Substance: FEBUXOSTAT
     Dosage: UNK UNK, UNKNOWN FREQ.
     Route: 065
  3. CELECOX [Suspect]
     Active Substance: CELECOXIB
     Dosage: 100 MG, 2X/DAY
     Route: 048
     Dates: start: 20180619
  4. BENIDIPINE HYDROCHLORIDE [Concomitant]
     Active Substance: BENIDIPINE HYDROCHLORIDE
     Dosage: UNK UNK, UNKNOWN FREQ.
     Route: 065
     Dates: start: 20180518
  5. BAYASPIRIN [Concomitant]
     Active Substance: ASPIRIN
     Dosage: UNK UNK, UNKNOWN FREQ.
     Route: 065
     Dates: start: 20180518
  6. MAGMITT [Concomitant]
     Active Substance: MAGNESIUM OXIDE
     Indication: ABDOMINAL PAIN
     Dosage: UNK UNK, UNKNOWN FREQ.
     Route: 048
     Dates: start: 20180515
  7. SENNOSIDE A+B [Concomitant]
     Active Substance: SENNOSIDES A AND B
     Dosage: 2 DF
     Route: 048
     Dates: start: 20180619
  8. SENNOSIDE A+B [Concomitant]
     Active Substance: SENNOSIDES A AND B
     Indication: ABDOMINAL PAIN
     Dosage: UNK UNK, UNKNOWN FREQ.
     Route: 048
     Dates: start: 20180515
  9. CELECOX [Suspect]
     Active Substance: CELECOXIB
     Indication: ABDOMINAL PAIN
     Dosage: 200 MG, 2X/DAY
     Route: 048
     Dates: start: 20180515
  10. LINZESS [Suspect]
     Active Substance: LINACLOTIDE
     Indication: CONSTIPATION
     Dosage: 0.25 MG, ONCE DAILY
     Route: 048
     Dates: start: 20180518, end: 20180619

REACTIONS (4)
  - Nausea [Unknown]
  - Colon cancer [Unknown]
  - Off label use [Unknown]
  - Product use in unapproved indication [Unknown]

NARRATIVE: CASE EVENT DATE: 2018
